FAERS Safety Report 14931340 (Version 1)
Quarter: 2018Q2

REPORT INFORMATION
  Report Type: Spontaneous
  Country: US (occurrence: US)
  Receive Date: 20180524
  Receipt Date: 20180524
  Transmission Date: 20180711
  Serious: No
  Sender: FDA-Public Use
  Company Number: US-ASTRAZENECA-2018SE57927

PATIENT
  Age: 71 Year
  Sex: Female

DRUGS (2)
  1. PROAIR HFA [Concomitant]
     Active Substance: ALBUTEROL SULFATE
     Route: 065
  2. SYMBICORT [Suspect]
     Active Substance: BUDESONIDE\FORMOTEROL FUMARATE DIHYDRATE
     Dosage: TWO INHALATIONS TWICE DAILY
     Route: 055
     Dates: start: 201802, end: 201802

REACTIONS (2)
  - Intentional product misuse [Unknown]
  - Choking sensation [Unknown]

NARRATIVE: CASE EVENT DATE: 201802
